FAERS Safety Report 10898892 (Version 1)
Quarter: 2015Q1

REPORT INFORMATION
  Report Type: Report from Study
  Country: CA (occurrence: CA)
  Receive Date: 20150309
  Receipt Date: 20150309
  Transmission Date: 20150721
  Serious: Yes (Death, Other)
  Sender: FDA-Public Use
  Company Number: PHHY2013CA119112

PATIENT
  Age: 71 Year
  Sex: Male

DRUGS (2)
  1. SANDOSTATIN LAR DEPOT [Suspect]
     Active Substance: OCTREOTIDE ACETATE
     Indication: NEUROENDOCRINE TUMOUR
     Dosage: 30 MG, EVERY 28 DAYS
     Route: 030
     Dates: start: 20130923, end: 20150212
  2. SANDOSTATIN [Suspect]
     Active Substance: OCTREOTIDE ACETATE
     Indication: NEUROENDOCRINE TUMOUR
     Dosage: 50 UG, ONCE/SINGLE (TEST DOSE)
     Route: 058
     Dates: start: 20130912

REACTIONS (15)
  - Blood pressure diastolic decreased [Unknown]
  - Lethargy [Unknown]
  - Faeces discoloured [Unknown]
  - Death [Fatal]
  - Body temperature decreased [Unknown]
  - Skin ulcer [Recovered/Resolved]
  - Heart rate decreased [Unknown]
  - Cellulitis [Unknown]
  - Infected skin ulcer [Recovered/Resolved]
  - Blood pressure systolic increased [Unknown]
  - Oedema [Not Recovered/Not Resolved]
  - Heart rate irregular [Unknown]
  - Dyspnoea [Unknown]
  - Fatigue [Unknown]
  - Blood glucose abnormal [Unknown]

NARRATIVE: CASE EVENT DATE: 201309
